FAERS Safety Report 19688237 (Version 2)
Quarter: 2021Q4

REPORT INFORMATION
  Report Type: Spontaneous
  Country: US (occurrence: US)
  Receive Date: 20210811
  Receipt Date: 20211014
  Transmission Date: 20220303
  Serious: No
  Sender: FDA-Public Use
  Company Number: US-PFIZER INC-2021601633

PATIENT
  Age: 64 Year
  Sex: Female
  Weight: 71.65 kg

DRUGS (9)
  1. IBRANCE [Suspect]
     Active Substance: PALBOCICLIB
     Indication: Breast cancer female
     Dosage: 125 MG, CYCLIC (DAILY FOR 21 DAYS)
     Route: 048
     Dates: start: 20210504
  2. IBRANCE [Suspect]
     Active Substance: PALBOCICLIB
     Indication: Hormone receptor positive breast cancer
     Dosage: 100 MG, CYCLIC (DAILY FOR 21 DAYS THEN 7 DAYS OFF)
     Route: 048
     Dates: start: 20210504
  3. IBRANCE [Suspect]
     Active Substance: PALBOCICLIB
     Dosage: 75 MG, CYCLIC (DAILY X 21 DAYS)
     Route: 048
     Dates: start: 20210504
  4. IBRANCE [Suspect]
     Active Substance: PALBOCICLIB
     Dosage: 75 MG, CYCLIC (FOR 21 DAYS WITH AN EXTRA WEEK OFF)
  5. FASLODEX [Concomitant]
     Active Substance: FULVESTRANT
     Dosage: 250 MG/5ML SYRINGE
  6. ADVIL [Concomitant]
     Active Substance: IBUPROFEN
     Dosage: UNK
  7. HYDROCHLOROTHIAZIDE [Concomitant]
     Active Substance: HYDROCHLOROTHIAZIDE
     Dosage: UNK
  8. NIFEDIPINE [Concomitant]
     Active Substance: NIFEDIPINE
     Dosage: UNK
  9. ATORVASTATIN CALCIUM [Concomitant]
     Active Substance: ATORVASTATIN CALCIUM
     Dosage: UNK

REACTIONS (4)
  - Nausea [Unknown]
  - Vomiting [Unknown]
  - White blood cell count decreased [Unknown]
  - Fatigue [Unknown]
